FAERS Safety Report 8934008 (Version 2)
Quarter: 2013Q1

REPORT INFORMATION
  Report Type: Report from Study
  Country: SE (occurrence: SE)
  Receive Date: 20121129
  Receipt Date: 20130227
  Transmission Date: 20140127
  Serious: Yes (Hospitalization)
  Sender: FDA-Public Use
  Company Number: SE-ROCHE-1161767

PATIENT
  Age: 54 Year
  Sex: Female

DRUGS (4)
  1. TOCILIZUMAB [Suspect]
     Indication: RHEUMATOID ARTHRITIS
     Dosage: 8 MG/KG
     Route: 065
  2. PANODIL [Concomitant]
     Indication: RHEUMATOID ARTHRITIS
     Route: 065
  3. TRADOLAN [Concomitant]
     Indication: PAIN
     Dosage: AS REQUIRED
     Route: 065
  4. TRADOLAN [Concomitant]
     Indication: PAIN
     Route: 065

REACTIONS (1)
  - Rheumatoid arthritis [Recovered/Resolved]
